FAERS Safety Report 6292604-9 (Version None)
Quarter: 2009Q3

REPORT INFORMATION
  Report Type: 
  Country: None (occurrence: None)
  Receive Date: 20090731
  Receipt Date: 20090723
  Transmission Date: 20100115
  Serious: Yes (Other)
  Sender: FDA-Public Use
  Company Number: US-ASTRAZENECA-2009SE05869

PATIENT
  Age: 43 Year
  Sex: Female

DRUGS (9)
  1. PULMICORT-100 [Suspect]
     Indication: ASTHMA
     Route: 055
     Dates: start: 20090301, end: 20090622
  2. BROVANA [Suspect]
     Indication: ASTHMA
     Dosage: 15 UG/2ML PRN
     Route: 055
     Dates: start: 20090301, end: 20090623
  3. CELLCEPT [Concomitant]
  4. PREDNISOLONE [Concomitant]
  5. PRILOSEC [Concomitant]
     Route: 048
  6. REGLAN [Concomitant]
  7. IBUPROFEN [Concomitant]
  8. VICODIN [Concomitant]
  9. DIAZEPAM [Concomitant]

REACTIONS (4)
  - AMNESIA [None]
  - CONVULSION [None]
  - LOSS OF CONSCIOUSNESS [None]
  - SLEEP DISORDER [None]
